FAERS Safety Report 7239359-9 (Version None)
Quarter: 2011Q1

REPORT INFORMATION
  Report Type: 
  Country: None (occurrence: None)
  Receive Date: 20110121
  Receipt Date: 20110113
  Transmission Date: 20110831
  Serious: No
  Sender: FDA-Public Use
  Company Number: US-B.I. PHARMACEUTICALS,INC./RIDGEFIELD-2010-BP-13019BP

PATIENT
  Age: 76 Year
  Sex: Male
  Weight: 113.85 kg

DRUGS (8)
  1. PRADAXA [Suspect]
     Indication: ARRHYTHMIA PROPHYLAXIS
  2. MEDICATIONS [Concomitant]
  3. PRADAXA [Suspect]
     Indication: ATRIAL FIBRILLATION
  4. ATACAND [Concomitant]
  5. COREG [Concomitant]
  6. PRADAXA [Suspect]
     Indication: ANTICOAGULANT THERAPY
     Dosage: 300 MG
     Route: 048
     Dates: start: 20101113
  7. IMDUR [Concomitant]
  8. MEVACOR [Concomitant]

REACTIONS (2)
  - HAEMOPTYSIS [None]
  - MUCOUS MEMBRANE DISORDER [None]
